FAERS Safety Report 7449235-4 (Version None)
Quarter: 2011Q2

REPORT INFORMATION
  Report Type: 
  Country: None (occurrence: None)
  Receive Date: 20110502
  Receipt Date: 20110421
  Transmission Date: 20111010
  Serious: Yes (Hospitalization)
  Sender: FDA-Public Use
  Company Number: 2008BI016187

PATIENT
  Age: 44 Year
  Sex: Female

DRUGS (5)
  1. TYSABRI [Suspect]
     Indication: RELAPSING-REMITTING MULTIPLE SCLEROSIS
     Route: 042
     Dates: start: 20070601
  2. CIPRAMIL [Concomitant]
  3. CIPRO [Concomitant]
     Indication: PRODUCT USED FOR UNKNOWN INDICATION
  4. EUGALAC [Concomitant]
  5. LIORESAL [Concomitant]

REACTIONS (6)
  - PNEUMONIA [None]
  - GAIT DISTURBANCE [None]
  - CUSHING'S SYNDROME [None]
  - ENCEPHALITIS HERPES [None]
  - PROTEUS INFECTION [None]
  - CONVULSION [None]
